FAERS Safety Report 8178122 (Version 3)
Quarter: 2013Q1

REPORT INFORMATION
  Report Type: Report from Study
  Country: DZ (occurrence: DZ)
  Receive Date: 20111012
  Receipt Date: 20130110
  Transmission Date: 20140127
  Serious: Yes (Death, Other)
  Sender: FDA-Public Use
  Company Number: DZ-ROCHE-1000900

PATIENT
  Sex: Female

DRUGS (3)
  1. TRASTUZUMAB [Suspect]
     Indication: BREAST CANCER
     Route: 042
     Dates: start: 20101102, end: 20110810
  2. AMAREL [Concomitant]
     Indication: DIABETES MELLITUS
  3. TENSOPRIL [Concomitant]
     Indication: HYPERTENSION

REACTIONS (8)
  - Cardio-respiratory arrest [Fatal]
  - Headache [Fatal]
  - Chest pain [Fatal]
  - Lung disorder [Fatal]
  - Pulmonary oedema [Fatal]
  - Ejection fraction decreased [Unknown]
  - Asthenia [Unknown]
  - Weight decreased [Unknown]
